FAERS Safety Report 4634290-7 (Version None)
Quarter: 2005Q2

REPORT INFORMATION
  Report Type: 
  Country: None (occurrence: None)
  Receive Date: 20050413
  Receipt Date: 20050406
  Transmission Date: 20051028
  Serious: Yes (Other)
  Sender: FDA-Public Use
  Company Number: PHBS2005JP04886

PATIENT
  Age: 50 Year
  Sex: Female

DRUGS (2)
  1. ADRENOCORTICOTROPHIC HORMONE [Suspect]
     Indication: SYSTEMIC LUPUS ERYTHEMATOSUS
     Route: 065
  2. CYCLOSPORINE [Suspect]
     Indication: SYSTEMIC LUPUS ERYTHEMATOSUS
     Route: 065

REACTIONS (2)
  - PNEUMOMEDIASTINUM [None]
  - PNEUMONITIS CRYPTOCOCCAL [None]
